FAERS Safety Report 5991862-5 (Version None)
Quarter: 2008Q4

REPORT INFORMATION
  Report Type: 
  Country: None (occurrence: None)
  Receive Date: 20081202
  Receipt Date: 20071019
  Transmission Date: 20090506
  Serious: Yes (Disabling, Other)
  Sender: FDA-Public Use
  Company Number: WAES 0505USA02366

PATIENT
  Age: 70 Year
  Sex: Female
  Weight: 61.6892 kg

DRUGS (8)
  1. FOSAMAX [Suspect]
     Indication: OSTEOPOROSIS
     Dosage: PO ; 1 TABLET/DAILY/PO  70 MG/WKY/PO
     Route: 048
     Dates: start: 19990202, end: 20010101
  2. FOSAMAX [Suspect]
     Indication: OSTEOPOROSIS
     Dosage: PO ; 1 TABLET/DAILY/PO  70 MG/WKY/PO
     Route: 048
     Dates: start: 19950101, end: 20050101
  3. FOSAMAX [Suspect]
     Indication: OSTEOPOROSIS
     Dosage: PO ; 1 TABLET/DAILY/PO  70 MG/WKY/PO
     Route: 048
     Dates: start: 20010105, end: 20050303
  4. . [Concomitant]
  5. BEXTRA [Concomitant]
  6. EVISTA [Concomitant]
  7. LIPITOR [Concomitant]
  8. SYNTHROID [Concomitant]

REACTIONS (14)
  - BACK DISORDER [None]
  - BASAL CELL CARCINOMA [None]
  - DRUG HYPERSENSITIVITY [None]
  - FOOT FRACTURE [None]
  - GINGIVAL INFECTION [None]
  - HYPERTENSION [None]
  - IMPAIRED HEALING [None]
  - INFECTION [None]
  - LOWER LIMB FRACTURE [None]
  - OSTEOMYELITIS [None]
  - OSTEONECROSIS [None]
  - ROTATOR CUFF SYNDROME [None]
  - SKIN CANCER [None]
  - URINARY TRACT INFECTION [None]
